FAERS Safety Report 8914716 (Version 2)
Quarter: 2012Q4

REPORT INFORMATION
  Report Type: 
  Country: TR (occurrence: TR)
  Receive Date: 20121119
  Receipt Date: 20121214
  Transmission Date: 20130627
  Serious: Yes (Hospitalization)
  Sender: FDA-Public Use
  Company Number: TR-PFIZER INC-2012289407

PATIENT
  Age: 52 Year
  Sex: Female

DRUGS (3)
  1. CHAMPIX [Suspect]
     Dosage: UNK
     Dates: start: 20121102
  2. LEVOTIRON [Concomitant]
     Dosage: UNK
  3. DELIX [Concomitant]
     Indication: HYPERTENSION
     Dosage: UNK

REACTIONS (2)
  - Oropharyngeal pain [Recovering/Resolving]
  - Throat tightness [Recovering/Resolving]
